FAERS Safety Report 9074403 (Version 1)
Quarter: 2013Q1

REPORT INFORMATION
  Report Type: Report from Study
  Country: US (occurrence: US)
  Receive Date: 20130128
  Receipt Date: 20130128
  Transmission Date: 20140127
  Serious: No
  Sender: FDA-Public Use
  Company Number: US-ABBOTT-12P-163-0915517-00

PATIENT
  Age: 49 Year
  Sex: Male

DRUGS (3)
  1. HUMIRA 40 MG/0.8 ML PEN [Suspect]
     Indication: PSORIASIS
     Dates: start: 201203, end: 201203
  2. HUMIRA 40 MG/0.8 ML PEN [Suspect]
  3. HUMIRA 40 MG/0.8 ML PEN [Suspect]

REACTIONS (2)
  - Nasopharyngitis [Unknown]
  - Respiratory tract congestion [Unknown]
